FAERS Safety Report 23775752 (Version 1)
Quarter: 2024Q2

REPORT INFORMATION
  Report Type: Spontaneous
  Country: HU (occurrence: HU)
  Receive Date: 20240423
  Receipt Date: 20240423
  Transmission Date: 20240716
  Serious: Yes (Death, Hospitalization, Other)
  Sender: FDA-Public Use
  Company Number: None

PATIENT
  Age: 79 Year
  Sex: Male
  Weight: 130 kg

DRUGS (16)
  1. OPDIVO [Suspect]
     Active Substance: NIVOLUMAB
     Indication: Product used for unknown indication
     Dosage: ON 08/2023 THE PATIENT STARTED TO RECEIVING 240 MG OPDIVO INTRAVENOUSUS IN EVERY 3 WEEKS, THEN ON 12
     Route: 042
     Dates: start: 202308
  2. OPDIVO [Suspect]
     Active Substance: NIVOLUMAB
     Dosage: ON 08/2023 THE PATIENT STARTED TO RECEIVING 240 MG OPDIVO INTRAVENOUSUS IN EVERY 3 WEEKS, THEN ON 12
     Route: 042
     Dates: start: 20240312
  3. NEBIVOLOL [Concomitant]
     Active Substance: NEBIVOLOL
     Route: 048
  4. AFLAMIN [ACECLOFENAC] [Concomitant]
  5. FUROSEMIDE [Concomitant]
     Active Substance: FUROSEMIDE
  6. PANTOPRAZOLE [Concomitant]
     Active Substance: PANTOPRAZOLE
  7. ALFUZOSIN [Concomitant]
     Active Substance: ALFUZOSIN
     Route: 048
  8. FINASTERIDE [Concomitant]
     Active Substance: FINASTERIDE
     Route: 048
  9. ATORVASTATIN [Concomitant]
     Active Substance: ATORVASTATIN
     Route: 048
  10. RILMENIDINE [Concomitant]
     Active Substance: RILMENIDINE
     Route: 048
  11. .ALPHA.-LIPOIC ACID [Concomitant]
     Active Substance: .ALPHA.-LIPOIC ACID
  12. OLODATEROL HYDROCHLORIDE\TIOTROPIUM BROMIDE MONOHYDRATE [Concomitant]
     Active Substance: OLODATEROL HYDROCHLORIDE\TIOTROPIUM BROMIDE MONOHYDRATE
  13. LYRICA [Concomitant]
     Active Substance: PREGABALIN
  14. INSULIN ASPART [Concomitant]
     Active Substance: INSULIN ASPART
  15. AMLODIPINE BESYLATE\INDAPAMIDE\PERINDOPRIL ARGININE [Concomitant]
     Active Substance: AMLODIPINE BESYLATE\INDAPAMIDE\PERINDOPRIL ARGININE
     Route: 048
  16. ALLOPURINOL [Concomitant]
     Active Substance: ALLOPURINOL
     Route: 048

REACTIONS (4)
  - Acute kidney injury [Fatal]
  - Cardiotoxicity [Fatal]
  - Overdose [Fatal]
  - Off label use [Unknown]

NARRATIVE: CASE EVENT DATE: 20240312
